FAERS Safety Report 19479849 (Version 1)
Quarter: 2021Q3

REPORT INFORMATION
  Report Type: Spontaneous
  Country: US (occurrence: US)
  Receive Date: 20210701
  Receipt Date: 20210701
  Transmission Date: 20211014
  Serious: Yes (Hospitalization)
  Sender: FDA-Public Use
  Company Number: US-DRREDDYS-LIT/USA/21/0137177

PATIENT
  Age: 16 Year
  Sex: Female

DRUGS (4)
  1. CHLORPROMAZINE. [Suspect]
     Active Substance: CHLORPROMAZINE
     Indication: CATATONIA
  2. ARIPIPRAZOLE. [Suspect]
     Active Substance: ARIPIPRAZOLE
     Indication: CATATONIA
  3. RISPERIDONE. [Suspect]
     Active Substance: RISPERIDONE
     Indication: CATATONIA
     Route: 048
  4. LITHIUM. [Suspect]
     Active Substance: LITHIUM
     Indication: CATATONIA

REACTIONS (2)
  - Torticollis [Unknown]
  - Treatment failure [Unknown]
